FAERS Safety Report 20608159 (Version 1)
Quarter: 2022Q1

REPORT INFORMATION
  Report Type: Spontaneous
  Country: US (occurrence: None)
  Receive Date: 20220317
  Receipt Date: 20220317
  Transmission Date: 20220423
  Serious: No
  Sender: FDA-Public Use
  Company Number: None

PATIENT
  Age: 77 Year
  Sex: Female
  Weight: 81.65 kg

DRUGS (14)
  1. INLYTA [Suspect]
     Active Substance: AXITINIB
     Indication: Lung neoplasm malignant
     Dosage: FREQUENCY : TWICE A DAY;?
     Route: 048
     Dates: start: 20220307
  2. CALCIUM [Concomitant]
     Active Substance: CALCIUM
  3. EFUDEX [Concomitant]
     Active Substance: FLUOROURACIL
  4. FISH OIL [Concomitant]
     Active Substance: FISH OIL
  5. HYZAAR [Concomitant]
     Active Substance: HYDROCHLOROTHIAZIDE\LOSARTAN POTASSIUM
  6. KEYTRUDA [Concomitant]
     Active Substance: PEMBROLIZUMAB
  7. LORTAB [Concomitant]
     Active Substance: ACETAMINOPHEN\HYDROCODONE BITARTRATE
  8. MORPHINE [Concomitant]
     Active Substance: MORPHINE
  9. VITAMINS [Concomitant]
     Active Substance: VITAMINS
  10. NORCO [Concomitant]
     Active Substance: ACETAMINOPHEN\HYDROCODONE BITARTRATE
  11. SIMVASTATIN [Concomitant]
     Active Substance: SIMVASTATIN
  12. SORBITOL [Concomitant]
     Active Substance: SORBITOL
  13. VITAMIN B12 [Concomitant]
     Active Substance: CYANOCOBALAMIN
  14. XULTOPHY 100/3.6 [Concomitant]
     Active Substance: INSULIN DEGLUDEC\LIRAGLUTIDE

REACTIONS (3)
  - Hip arthroplasty [None]
  - Tongue ulceration [None]
  - Skin ulcer [None]
